FAERS Safety Report 13562233 (Version 6)
Quarter: 2020Q3

REPORT INFORMATION
  Report Type: Spontaneous
  Country: FR (occurrence: FR)
  Receive Date: 20170519
  Receipt Date: 20200924
  Transmission Date: 20201102
  Serious: Yes (Hospitalization)
  Sender: FDA-Public Use
  Company Number: FR-ROCHE-1937102

PATIENT
  Age: 82 Year
  Sex: Male
  Weight: 78 kg

DRUGS (16)
  1. MABTHERA [Suspect]
     Active Substance: RITUXIMAB
     Indication: MANTLE CELL LYMPHOMA
     Dosage: SECOND CYCLE ON 31?JAN?2017
     Route: 042
     Dates: start: 20170102, end: 20170131
  2. BENDAMUSTINE [Suspect]
     Active Substance: BENDAMUSTINE
     Dosage: SECOND CYCLE ON 31?JAN?2017
     Route: 042
     Dates: start: 20170103, end: 20170131
  3. VELCADE [Suspect]
     Active Substance: BORTEZOMIB
     Dosage: SECOND CYCLE ON 31?JAN?2017
     Route: 058
     Dates: start: 20170103, end: 20170131
  4. DEXAMETHASONE SODIUM PHOSPHATE. [Suspect]
     Active Substance: DEXAMETHASONE SODIUM PHOSPHATE
     Dosage: SECOND CYCLE ON 31?JAN?2017
     Route: 065
     Dates: start: 20170103, end: 20170131
  5. MOVICOL [Concomitant]
     Active Substance: POLYETHYLENE GLYCOL 3350\POTASSIUM CHLORIDE\SODIUM BICARBONATE\SODIUM CHLORIDE
  6. VASELINE PURE [Concomitant]
     Active Substance: PETROLATUM
  7. NEOMYCIN. [Concomitant]
     Active Substance: NEOMYCIN
  8. MABTHERA [Suspect]
     Active Substance: RITUXIMAB
     Dosage: SECOND CYCLE ON 31?JAN?2017
     Route: 042
     Dates: start: 20170103, end: 20170131
  9. BACTRIM [Suspect]
     Active Substance: SULFAMETHOXAZOLE\TRIMETHOPRIM
     Indication: PROPHYLAXIS
     Route: 048
     Dates: start: 20170106, end: 20170222
  10. BENDAMUSTINE [Suspect]
     Active Substance: BENDAMUSTINE
     Indication: MANTLE CELL LYMPHOMA
     Dosage: SECOND CYCLE ON 31?JAN?2017
     Route: 042
     Dates: start: 20170102, end: 20170131
  11. ACYCLOVIR. [Concomitant]
     Active Substance: ACYCLOVIR
  12. VALACICLOVIR [Suspect]
     Active Substance: VALACYCLOVIR HYDROCHLORIDE
     Indication: PROPHYLAXIS
     Route: 048
     Dates: start: 20170106, end: 20170222
  13. VELCADE [Suspect]
     Active Substance: BORTEZOMIB
     Indication: MANTLE CELL LYMPHOMA
     Dosage: SECOND CYCLE ON 31?JAN?2017
     Route: 058
     Dates: start: 20170102, end: 20170131
  14. DEXAMETHASONE SODIUM PHOSPHATE. [Suspect]
     Active Substance: DEXAMETHASONE SODIUM PHOSPHATE
     Indication: MANTLE CELL LYMPHOMA
     Dosage: SECOND CYCLE ON 31?JAN?2017
     Route: 065
     Dates: start: 20170102, end: 20170131
  15. PRIMPERAN [Concomitant]
     Active Substance: METOCLOPRAMIDE HYDROCHLORIDE
     Indication: VOMITING
  16. PROPYLENE GLYCOL [Concomitant]
     Active Substance: PROPYLENE GLYCOL

REACTIONS (1)
  - Dermatitis exfoliative generalised [Recovered/Resolved]

NARRATIVE: CASE EVENT DATE: 20170217
